FAERS Safety Report 25050770 (Version 1)
Quarter: 2025Q1

REPORT INFORMATION
  Report Type: Spontaneous
  Country: DE (occurrence: DE)
  Receive Date: 20250307
  Receipt Date: 20250307
  Transmission Date: 20250409
  Serious: Yes (Other)
  Sender: AMGEN
  Company Number: DE-AMGEN-DEUSP2024231867

PATIENT

DRUGS (2)
  1. ECULIZUMAB [Suspect]
     Active Substance: ECULIZUMAB
     Indication: Thrombotic microangiopathy
     Route: 065
  2. CAPLACIZUMAB [Concomitant]
     Active Substance: CAPLACIZUMAB
     Route: 065

REACTIONS (2)
  - Dialysis [Unknown]
  - Off label use [Unknown]
